FAERS Safety Report 7276107-0 (Version None)
Quarter: 2011Q1

REPORT INFORMATION
  Report Type: 
  Country: None (occurrence: None)
  Receive Date: 20110204
  Receipt Date: 20110202
  Transmission Date: 20110831
  Serious: Yes (Other)
  Sender: FDA-Public Use
  Company Number: BR-PFIZER INC-2011024136

PATIENT
  Age: 47 Year
  Sex: Female
  Weight: 75 kg

DRUGS (3)
  1. CRESTOR [Concomitant]
     Indication: HYPERCHOLESTEROLAEMIA
     Dosage: 1 DF, UNK
     Route: 048
     Dates: start: 20091001
  2. PANTOZOL [Suspect]
     Indication: GASTROOESOPHAGEAL REFLUX DISEASE
     Dosage: 2 DF, 1X/DAY
     Route: 048
     Dates: start: 20101217
  3. MOTILIUM-M [Concomitant]
     Indication: GASTROOESOPHAGEAL REFLUX DISEASE
     Dosage: 3 DF, 1 IN 8 HR
     Route: 048
     Dates: start: 20101217

REACTIONS (15)
  - DECREASED APPETITE [None]
  - WEIGHT DECREASED [None]
  - EYE PRURITUS [None]
  - ABDOMINAL PAIN LOWER [None]
  - CHILLS [None]
  - GLOSSODYNIA [None]
  - ORAL DISCOMFORT [None]
  - PARAESTHESIA [None]
  - ANOSMIA [None]
  - AGEUSIA [None]
  - DYSGEUSIA [None]
  - EYE IRRITATION [None]
  - ABDOMINAL PAIN UPPER [None]
  - VISION BLURRED [None]
  - TREMOR [None]
